FAERS Safety Report 9720060 (Version 1)
Quarter: 2013Q4

REPORT INFORMATION
  Report Type: Report from Study
  Country: FR (occurrence: FR)
  Receive Date: 20131128
  Receipt Date: 20131128
  Transmission Date: 20140711
  Serious: Yes (Other)
  Sender: FDA-Public Use
  Company Number: FR-ROCHE-1311376

PATIENT
  Sex: 0

DRUGS (2)
  1. ALTEPLASE [Suspect]
     Indication: CEREBRAL ISCHAEMIA
     Dosage: 10% AS BOLUS
     Route: 042
  2. ALTEPLASE [Suspect]
     Dosage: MAX
     Route: 042

REACTIONS (1)
  - Pulmonary embolism [Unknown]
